FAERS Safety Report 10557590 (Version 1)
Quarter: 2014Q4

REPORT INFORMATION
  Report Type: Spontaneous
  Country: US (occurrence: None)
  Receive Date: 20141030
  Receipt Date: 20141030
  Transmission Date: 20150529
  Serious: No
  Sender: FDA-Public Use
  Company Number: None

PATIENT
  Age: 49 Year
  Sex: Female

DRUGS (1)
  1. TECFIDERA [Suspect]
     Active Substance: DIMETHYL FUMARATE
     Indication: MULTIPLE SCLEROSIS
     Route: 048
     Dates: start: 20140106, end: 20140925

REACTIONS (4)
  - Faeces discoloured [None]
  - Paraesthesia [None]
  - Abdominal distension [None]
  - Urine odour abnormal [None]

NARRATIVE: CASE EVENT DATE: 20140925
